FAERS Safety Report 6056447-3 (Version None)
Quarter: 2009Q1

REPORT INFORMATION
  Report Type: 
  Country: None (occurrence: None)
  Receive Date: 20090129
  Receipt Date: 20090119
  Transmission Date: 20090719
  Serious: Yes (Hospitalization)
  Sender: FDA-Public Use
  Company Number: ES-BAYER-200911614GPV

PATIENT
  Age: 19 Year
  Sex: Female

DRUGS (2)
  1. YASMIN [Suspect]
     Indication: ORAL CONTRACEPTION
     Route: 048
     Dates: start: 20080301, end: 20081126
  2. FLUMIL 4% SOLUCION ORAL (ACETYLCYSTEINA) [Suspect]
     Indication: NASOPHARYNGITIS
     Dates: start: 20081108, end: 20081115

REACTIONS (6)
  - CHEILITIS [None]
  - EYELID OEDEMA [None]
  - NASAL MUCOSAL DISORDER [None]
  - ORAL DISORDER [None]
  - RASH PUSTULAR [None]
  - TOXIC EPIDERMAL NECROLYSIS [None]
